FAERS Safety Report 9865617 (Version 1)
Quarter: 2014Q1

REPORT INFORMATION
  Report Type: Spontaneous
  Country: US (occurrence: US)
  Receive Date: 20140203
  Receipt Date: 20140203
  Transmission Date: 20141002
  Serious: No
  Sender: FDA-Public Use
  Company Number: US-ALLERGAN-1306560US

PATIENT
  Age: 79 Year
  Sex: Female

DRUGS (1)
  1. RESTASIS [Suspect]
     Indication: PRODUCT USED FOR UNKNOWN INDICATION
     Dosage: 2 GTT, BID
     Route: 047
     Dates: start: 201302

REACTIONS (5)
  - Poor quality drug administered [Unknown]
  - Asthenopia [Unknown]
  - Abnormal sensation in eye [Unknown]
  - Foreign body sensation in eyes [Unknown]
  - Instillation site pain [Unknown]
